FAERS Safety Report 6837422-5 (Version None)
Quarter: 2010Q3

REPORT INFORMATION
  Report Type: 
  Country: None (occurrence: None)
  Receive Date: 20100707
  Receipt Date: 20100623
  Transmission Date: 20110219
  Serious: Yes (Hospitalization, Other)
  Sender: FDA-Public Use
  Company Number: WAES 1006USA04021

PATIENT
  Age: 69 Year
  Sex: Male
  Weight: 81.6475 kg

DRUGS (6)
  1. ZOCOR [Suspect]
     Indication: ACUTE CORONARY SYNDROME
     Dosage: 80 MG/DAILY/PO
     Route: 048
     Dates: start: 20061117, end: 20100421
  2. PLACEBO (UNSPECIFIED) UNK [Suspect]
     Indication: ACUTE CORONARY SYNDROME
     Dosage: /PO
     Route: 048
     Dates: start: 20061117, end: 20100421
  3. PLACEBO (UNSPECIFIED) UNK [Suspect]
     Indication: ACUTE CORONARY SYNDROME
     Dosage: /PO
     Route: 048
     Dates: start: 20061117, end: 20100421
  4. ALBYL-E [Concomitant]
  5. MAREVAN [Concomitant]
  6. ZYLORIC [Concomitant]

REACTIONS (1)
  - BREAST CANCER MALE [None]
